FAERS Safety Report 4450491-5 (Version None)
Quarter: 2004Q3

REPORT INFORMATION
  Report Type: 
  Country: None (occurrence: None)
  Receive Date: 20040914
  Receipt Date: 20040907
  Transmission Date: 20050211
  Serious: Yes (Other)
  Sender: FDA-Public Use
  Company Number: US-JNJFOC-20040902470

PATIENT
  Sex: Female

DRUGS (4)
  1. NIZORAL [Suspect]
     Indication: PRURITUS
     Dates: start: 20040905, end: 20040907
  2. AMOXICILLIN/CLAVULANIC ACID (AMOXICILLIN W/CLAVULANATE POTASSIUM) [Suspect]
     Indication: SINUSITIS
     Dates: start: 20040825, end: 20040905
  3. PREMARIN [Concomitant]
  4. VALDECOXIB [Concomitant]

REACTIONS (2)
  - PRURITUS [None]
  - RASH [None]
